FAERS Safety Report 9325813 (Version 1)
Quarter: 2013Q2

REPORT INFORMATION
  Report Type: Spontaneous
  Country: US (occurrence: None)
  Receive Date: 20130603
  Receipt Date: 20130603
  Transmission Date: 20140414
  Serious: No
  Sender: FDA-Public Use
  Company Number: None

PATIENT
  Age: 43 Year
  Sex: Female
  Weight: 56.7 kg

DRUGS (3)
  1. BOTOX [Suspect]
     Indication: HEADACHE
     Dosage: 50 UNITS ONCE INJECT
     Dates: start: 2011, end: 2013
  2. BOTOX [Suspect]
     Indication: SKIN COSMETIC PROCEDURE
     Dosage: 50 UNITS ONCE INJECT
     Dates: start: 2011, end: 2013
  3. JUVEDERM [Suspect]
     Dosage: 2 SYRINGES
     Dates: start: 2009, end: 2012

REACTIONS (2)
  - Drug ineffective [None]
  - Product quality issue [None]
